FAERS Safety Report 16337227 (Version 2)
Quarter: 2019Q2

REPORT INFORMATION
  Report Type: Spontaneous
  Country: US (occurrence: US)
  Receive Date: 20190521
  Receipt Date: 20190524
  Transmission Date: 20190711
  Serious: Yes (Other)
  Sender: FDA-Public Use
  Company Number: US-PFIZER INC-2019212475

PATIENT
  Age: 51 Year
  Sex: Female
  Weight: 163.29 kg

DRUGS (2)
  1. GABAPENTIN. [Suspect]
     Active Substance: GABAPENTIN
     Indication: NERVE INJURY
     Dosage: 300 MG, DAILY
     Dates: start: 201901, end: 201901
  2. GABAPENTIN. [Suspect]
     Active Substance: GABAPENTIN
     Dosage: 300 MG, 3X/DAY
     Route: 048
     Dates: start: 201901

REACTIONS (6)
  - Memory impairment [Unknown]
  - Disease recurrence [Unknown]
  - Drug ineffective for unapproved indication [Unknown]
  - Impaired healing [Unknown]
  - Hernia [Unknown]
  - Off label use [Unknown]

NARRATIVE: CASE EVENT DATE: 2019
